FAERS Safety Report 8260468 (Version 2)
Quarter: 2012Q4

REPORT INFORMATION
  Report Type: Spontaneous
  Country: US (occurrence: None)
  Receive Date: 20111116
  Receipt Date: 20121120
  Transmission Date: 20130627
  Serious: Yes (Other)
  Sender: FDA-Public Use
  Company Number: TPA2011A07425

PATIENT
  Age: 53 Year
  Sex: Female

DRUGS (3)
  1. ACTOS (PIOGLITAZONE HYDROCHLORIDE) [Suspect]
     Indication: TYPE 2 DIABETES MELLITUS
     Dates: start: 2006
  2. INSULIN LISPRO [Concomitant]
  3. INSULIN GLARGINE [Concomitant]

REACTIONS (1)
  - Bladder cancer [None]
